FAERS Safety Report 8545266-1 (Version None)
Quarter: 2012Q3

REPORT INFORMATION
  Report Type: 
  Country: None (occurrence: None)
  Receive Date: 20120727
  Receipt Date: 20120719
  Transmission Date: 20120928
  Serious: Yes (Other)
  Sender: FDA-Public Use
  Company Number: CN-BAXTER-2012BAX012330

PATIENT
  Sex: Male
  Weight: 51 kg

DRUGS (1)
  1. SODIUM CHLORIDE INJ [Suspect]
     Route: 042
     Dates: start: 20100723, end: 20100826

REACTIONS (1)
  - ANAPHYLACTOID REACTION [None]
